FAERS Safety Report 4976706-2 (Version None)
Quarter: 2006Q2

REPORT INFORMATION
  Report Type: 
  Country: None (occurrence: None)
  Receive Date: 20060418
  Receipt Date: 20060418
  Transmission Date: 20061013
  Serious: Yes (Life-Threatening, Disabling, Other)
  Sender: FDA-Public Use
  Company Number: None

PATIENT
  Age: 48 Year
  Sex: Female
  Weight: 89.8122 kg

DRUGS (1)
  1. AROMASIN [Suspect]
     Indication: MASTECTOMY
     Dosage: 25MG  DAILY  PO
     Route: 048
     Dates: start: 20011021, end: 20041030

REACTIONS (14)
  - ALOPECIA [None]
  - ANAEMIA [None]
  - ASTHENIA [None]
  - CD4 LYMPHOCYTES DECREASED [None]
  - CD8 LYMPHOCYTES DECREASED [None]
  - CHILLS [None]
  - ILL-DEFINED DISORDER [None]
  - INFECTION [None]
  - NAUSEA [None]
  - NEUTROPENIA [None]
  - NON-HODGKIN'S LYMPHOMA [None]
  - POSTOPERATIVE INFECTION [None]
  - PYREXIA [None]
  - T-LYMPHOCYTE COUNT DECREASED [None]
